FAERS Safety Report 8035511-3 (Version None)
Quarter: 2012Q1

REPORT INFORMATION
  Report Type: 
  Country: None (occurrence: None)
  Receive Date: 20120110
  Receipt Date: 20120110
  Transmission Date: 20120608
  Serious: No
  Sender: FDA-Public Use
  Company Number: None

PATIENT
  Age: 30 Year
  Sex: Male
  Weight: 92.5 kg

DRUGS (3)
  1. HYDROMORPHONE HCL [Suspect]
     Indication: PAIN
     Dosage: 1MG Q 1H PRN IV ; 2 MG Q 2 H PRN IV
     Route: 042
     Dates: start: 20111224, end: 20111225
  2. LACTATED RINGER'S [Concomitant]
  3. MORPHINE [Concomitant]

REACTIONS (2)
  - RASH [None]
  - PRURITUS [None]
